FAERS Safety Report 23842568 (Version 1)
Quarter: 2024Q2

REPORT INFORMATION
  Report Type: Spontaneous
  Country: US (occurrence: US)
  Receive Date: 20240510
  Receipt Date: 20240510
  Transmission Date: 20240715
  Serious: Yes (Life-Threatening, Hospitalization)
  Sender: FDA-Public Use
  Company Number: US-DRL-USA-LIT/USA/24/0006870

PATIENT
  Age: 61 Year
  Sex: Female

DRUGS (4)
  1. FLUOXETINE [Suspect]
     Active Substance: FLUOXETINE HYDROCHLORIDE
     Indication: Premenstrual syndrome
  2. BUPROPION [Suspect]
     Active Substance: BUPROPION
     Indication: Premenstrual syndrome
  3. METHYLENE BLUE [Suspect]
     Active Substance: METHYLENE BLUE
     Indication: Vasoplegia syndrome
     Dosage: 100 MG IV; DOSES WERE GIVEN ON POSTOPERATIVE DAY ZERO (POD#0; DEFINED AS DAY OF SURGERY) AND ONE DOS
     Route: 042
  4. MEPERIDINE [Suspect]
     Active Substance: MEPERIDINE
     Indication: Product used for unknown indication
     Dosage: 25 MG WAS ADMINISTERED TO THE PATIENT ON POD#0.
     Route: 042

REACTIONS (2)
  - Serotonin syndrome [Recovered/Resolved]
  - Drug interaction [Recovered/Resolved]
